FAERS Safety Report 6019088-X (Version None)
Quarter: 2008Q4

REPORT INFORMATION
  Report Type: 
  Country: None (occurrence: None)
  Receive Date: 20081224
  Receipt Date: 20081217
  Transmission Date: 20090506
  Serious: Yes (Other)
  Sender: FDA-Public Use
  Company Number: US-PFIZER INC-2008156017

PATIENT
  Age: 74 Year

DRUGS (2)
  1. DEPO-MEDROL [Suspect]
  2. SENSORCAINE [Suspect]

REACTIONS (2)
  - DYSPNOEA [None]
  - SWELLING [None]
